FAERS Safety Report 10581226 (Version 1)
Quarter: 2014Q4

REPORT INFORMATION
  Report Type: Spontaneous
  Country: JP (occurrence: None)
  Receive Date: 20141110
  Receipt Date: 20141110
  Transmission Date: 20150529
  Serious: Yes (Life-Threatening, Hospitalization)
  Sender: FDA-Public Use
  Company Number: 2014SA142936

PATIENT
  Age: 76 Year
  Sex: Male
  Weight: 37.8 kg

DRUGS (9)
  1. ITOROL [Concomitant]
     Active Substance: ISOSORBIDE MONONITRATE
  2. WARFARIN [Concomitant]
     Active Substance: WARFARIN
  3. JANUVIA [Concomitant]
     Active Substance: SITAGLIPTIN PHOSPHATE
  4. APLEWAY [Suspect]
     Active Substance: TOFOGLIFLOZIN
     Indication: TYPE 2 DIABETES MELLITUS
     Route: 048
     Dates: start: 201405, end: 20141011
  5. DIURETICS [Concomitant]
     Active Substance: UNSPECIFIED INGREDIENT
  6. LANTUS [Concomitant]
     Active Substance: INSULIN GLARGINE
  7. LASIX [Suspect]
     Active Substance: FUROSEMIDE
     Indication: CARDIAC FAILURE
     Route: 048
  8. LIVALO [Concomitant]
     Active Substance: PITAVASTATIN CALCIUM
  9. GASTER [Concomitant]
     Active Substance: FAMOTIDINE

REACTIONS (5)
  - Renal failure [None]
  - Malnutrition [None]
  - Hyperglycaemia [None]
  - Pneumonia staphylococcal [None]
  - Dehydration [None]

NARRATIVE: CASE EVENT DATE: 20141010
